FAERS Safety Report 19685666 (Version 1)
Quarter: 2021Q3

REPORT INFORMATION
  Report Type: Spontaneous
  Country: BE (occurrence: BE)
  Receive Date: 20210811
  Receipt Date: 20210811
  Transmission Date: 20211014
  Serious: Yes (Death)
  Sender: FDA-Public Use
  Company Number: BE-PFIZER INC-202100987820

PATIENT
  Age: 52 Year
  Sex: Male
  Weight: 67 kg

DRUGS (4)
  1. COMIRNATY [Suspect]
     Active Substance: TOZINAMERAN
     Indication: COVID-19 IMMUNISATION
     Dosage: DOSE 1, SINGLE
     Dates: start: 20210605, end: 20210605
  2. BIKTARVY [Suspect]
     Active Substance: BICTEGRAVIR SODIUM\EMTRICITABINE\TENOFOVIR ALAFENAMIDE FUMARATE
     Dosage: 1 DF 1X/DAY
  3. DIFLUCAN [Suspect]
     Active Substance: FLUCONAZOLE
     Dosage: 1 DF 1X/DAY
  4. EUSAPRIM [Suspect]
     Active Substance: SULFAMETHOXAZOLE\TRIMETHOPRIM
     Dosage: 0.5 DF 1X/DAY

REACTIONS (7)
  - Thrombotic thrombocytopenic purpura [Fatal]
  - Sudden death [Fatal]
  - Pericardial haemorrhage [Fatal]
  - Thrombocytopenia [Fatal]
  - ADAMTS13 activity decreased [Fatal]
  - Coagulopathy [Fatal]
  - Autoimmune disorder [Fatal]

NARRATIVE: CASE EVENT DATE: 20210618
